FAERS Safety Report 7559696-8 (Version None)
Quarter: 2011Q2

REPORT INFORMATION
  Report Type: 
  Country: None (occurrence: None)
  Receive Date: 20110621
  Receipt Date: 20110608
  Transmission Date: 20111010
  Serious: Yes (Other)
  Sender: FDA-Public Use
  Company Number: US-ELI_LILLY_AND_COMPANY-US201106003100

PATIENT
  Age: 27 Year
  Sex: Female

DRUGS (2)
  1. CYMBALTA [Suspect]
     Dosage: 90 MG, UNKNOWN
     Dates: start: 20100101
  2. BUPROPION HCL [Concomitant]
     Dosage: 150 MG, UNKNOWN
     Dates: start: 20100101

REACTIONS (2)
  - ASPARTATE AMINOTRANSFERASE INCREASED [None]
  - CHOLELITHIASIS [None]
